FAERS Safety Report 16130080 (Version 1)
Quarter: 2019Q1

REPORT INFORMATION
  Report Type: Report from Study
  Country: GB (occurrence: GB)
  Receive Date: 20190328
  Receipt Date: 20190328
  Transmission Date: 20190418
  Serious: Yes (Hospitalization)
  Sender: FDA-Public Use
  Company Number: GB-PFIZER INC-2019125936

PATIENT
  Age: 64 Year
  Sex: Female

DRUGS (3)
  1. GEMCITABINE HYDROCHLORIDE. [Suspect]
     Active Substance: GEMCITABINE HYDROCHLORIDE
     Indication: OVARIAN CANCER
     Dosage: 250 MG/M2, CYCLIC (1X/DAY, DAY 1, 8 AND 15 OR EACH 28 DAY CYCLE)
     Route: 042
     Dates: start: 20190122, end: 20190219
  2. SRA737 [Suspect]
     Active Substance: INVESTIGATIONAL PRODUCT
     Dosage: 500 MG, CYCLIC (ONCE DAILY, EACH 28 DAY CYCLE)
     Route: 048
     Dates: start: 20190123, end: 20190221
  3. SRA737 [Suspect]
     Active Substance: INVESTIGATIONAL PRODUCT
     Indication: OVARIAN CANCER
     Dosage: 500 MG, SINGLE (DAY-7)
     Route: 048
     Dates: start: 20190115, end: 20190115

REACTIONS (2)
  - Respiratory tract infection [Recovered/Resolved]
  - Ascites [Recovered/Resolved]

NARRATIVE: CASE EVENT DATE: 20190222
